FAERS Safety Report 12985812 (Version 3)
Quarter: 2017Q2

REPORT INFORMATION
  Report Type: Report from Study
  Country: FR (occurrence: FR)
  Receive Date: 20161130
  Receipt Date: 20170623
  Transmission Date: 20170830
  Serious: Yes (Hospitalization)
  Sender: FDA-Public Use
  Company Number: FR-009507513-1611FRA012127

PATIENT
  Age: 51 Year
  Sex: Female
  Weight: 45 kg

DRUGS (7)
  1. LEXOMIL [Concomitant]
     Active Substance: BROMAZEPAM
     Dosage: UNK
  2. PARACETAMOL ACTAVIS [Concomitant]
     Active Substance: ACETAMINOPHEN
  3. PANTOPRAZOLE [Concomitant]
     Active Substance: PANTOPRAZOLE
  4. PEMBROLIZUMAB. [Suspect]
     Active Substance: PEMBROLIZUMAB
     Indication: MALIGNANT MELANOMA
     Dosage: 90 MG, Q3W
     Route: 042
     Dates: start: 20150710, end: 20150710
  5. PEMBROLIZUMAB. [Suspect]
     Active Substance: PEMBROLIZUMAB
     Dosage: 90 MG, Q3W
     Route: 042
     Dates: start: 20150911, end: 20151106
  6. PEMBROLIZUMAB. [Suspect]
     Active Substance: PEMBROLIZUMAB
     Dosage: 90 MG, Q3W
     Route: 042
     Dates: start: 20150731, end: 20150731
  7. ATARAX [Concomitant]
     Active Substance: HYDROXYZINE HYDROCHLORIDE
     Dosage: UNK

REACTIONS (6)
  - Herpes zoster [Recovered/Resolved with Sequelae]
  - Acute kidney injury [Recovered/Resolved]
  - Hypopituitarism [Unknown]
  - Amenorrhoea [Unknown]
  - Diabetic ketoacidosis [Recovered/Resolved]
  - Hypothyroidism [Unknown]

NARRATIVE: CASE EVENT DATE: 20150813
